FAERS Safety Report 16338069 (Version 1)
Quarter: 2019Q2

REPORT INFORMATION
  Report Type: Report from Study
  Country: AU (occurrence: AU)
  Receive Date: 20190521
  Receipt Date: 20190521
  Transmission Date: 20190711
  Serious: Yes (Hospitalization, Disabling, Other)
  Sender: FDA-Public Use
  Company Number: AU-MYLANLABS-2019M1047102

PATIENT
  Age: 39 Year
  Sex: Male

DRUGS (1)
  1. TENOFOVIR DISOPROXIL FUMARATE/EMTRICITABINE TABLETS 300/200MG [Suspect]
     Active Substance: EMTRICITABINE\TENOFOVIR DISOPROXIL FUMARATE
     Indication: PROPHYLAXIS AGAINST HIV INFECTION
     Dosage: 1 DOSAGE FORM, QD
     Route: 048
     Dates: start: 20180213

REACTIONS (7)
  - Neurosyphilis [Unknown]
  - Vertigo [Unknown]
  - Tinnitus [Unknown]
  - Hypoacusis [Not Recovered/Not Resolved]
  - Gonorrhoea [Unknown]
  - Vestibular disorder [Unknown]
  - Treponema test positive [Unknown]

NARRATIVE: CASE EVENT DATE: 201807
